FAERS Safety Report 8348200-2 (Version None)
Quarter: 2012Q2

REPORT INFORMATION
  Report Type: 
  Country: None (occurrence: None)
  Receive Date: 20120509
  Receipt Date: 20100714
  Transmission Date: 20120825
  Serious: Yes (Other)
  Sender: FDA-Public Use
  Company Number: US-TEVA-2010003770

PATIENT
  Sex: Female

DRUGS (6)
  1. NUVIGIL [Suspect]
     Indication: FATIGUE
     Dosage: 250 MILLIGRAM;
     Route: 048
     Dates: start: 20100101, end: 20100501
  2. EFFEXOR XR [Concomitant]
     Indication: AFFECTIVE DISORDER
  3. NUVIGIL [Suspect]
     Route: 048
     Dates: start: 20100501
  4. ATENOLOL [Concomitant]
     Indication: BLOOD PRESSURE
     Dates: start: 20090101
  5. EFFEXOR XR [Concomitant]
     Indication: ANXIETY
     Dates: start: 20050101
  6. ARICEPT [Concomitant]
     Indication: MENTAL IMPAIRMENT
     Dates: start: 20090101, end: 20090301

REACTIONS (3)
  - NAUSEA [None]
  - MIGRAINE [None]
  - ANXIETY [None]
